FAERS Safety Report 4953755-1 (Version None)
Quarter: 2006Q1

REPORT INFORMATION
  Report Type: 
  Country: None (occurrence: None)
  Receive Date: 20060327
  Receipt Date: 20060320
  Transmission Date: 20060701
  Serious: Yes (Other)
  Sender: FDA-Public Use
  Company Number: IT-BOEHRINGER INGELHEIM PHARMACEUTICALS, INC.-2006-DE-01462GD

PATIENT
  Age: 41 Year
  Sex: Male

DRUGS (3)
  1. NEVIRAPINE [Suspect]
     Indication: RETROVIRAL INFECTION
  2. DIDANOSINE [Suspect]
     Indication: RETROVIRAL INFECTION
  3. STAVUDINE [Suspect]
     Indication: RETROVIRAL INFECTION

REACTIONS (1)
  - BLOOD HIV RNA INCREASED [None]
